FAERS Safety Report 5123245-4 (Version None)
Quarter: 2006Q4

REPORT INFORMATION
  Report Type: 
  Country: None (occurrence: None)
  Receive Date: 20061009
  Receipt Date: 20060919
  Transmission Date: 20070319
  Serious: Yes (Hospitalization)
  Sender: FDA-Public Use
  Company Number: US-GLAXOSMITHKLINE-A0620726A

PATIENT
  Sex: Female

DRUGS (2)
  1. COREG [Suspect]
     Indication: CARDIAC FAILURE
     Route: 048
     Dates: start: 20040116
  2. XANAX [Concomitant]

REACTIONS (14)
  - ABDOMINAL DISTENSION [None]
  - ABDOMINAL PAIN [None]
  - ASTHENIA [None]
  - BLOOD GLUCOSE INCREASED [None]
  - BLOOD PRESSURE INCREASED [None]
  - CHEST PAIN [None]
  - DEPRESSION [None]
  - DYSPEPSIA [None]
  - EMOTIONAL DISTRESS [None]
  - FAECALOMA [None]
  - FATIGUE [None]
  - FEELING ABNORMAL [None]
  - HEART RATE INCREASED [None]
  - WEIGHT LOSS POOR [None]
